FAERS Safety Report 10020909 (Version 1)
Quarter: 2014Q1

REPORT INFORMATION
  Report Type: Spontaneous
  Country: US (occurrence: None)
  Receive Date: 20140318
  Receipt Date: 20140318
  Transmission Date: 20141002
  Serious: No
  Sender: FDA-Public Use
  Company Number: None

PATIENT
  Age: 62 Day
  Sex: Female
  Weight: 74.84 kg

DRUGS (1)
  1. SUPREP BOWEL PREP KIT [Suspect]
     Indication: COLONOSCOPY
     Dosage: FOLLOWED DIRECTIONS ON BOX ONE PM ONE AM
     Route: 048
     Dates: start: 20140313, end: 20140314

REACTIONS (2)
  - Abdominal pain upper [None]
  - Flatulence [None]
